FAERS Safety Report 15796719 (Version 2)
Quarter: 2019Q3

REPORT INFORMATION
  Report Type: Spontaneous
  Country: US (occurrence: US)
  Receive Date: 20190108
  Receipt Date: 20190704
  Transmission Date: 20191004
  Serious: Yes (Life-Threatening, Other)
  Sender: FDA-Public Use
  Company Number: US-SUN PHARMACEUTICAL INDUSTRIES LTD-2018R1-195285

PATIENT
  Age: 49 Year
  Sex: Female

DRUGS (2)
  1. CICLOSPORIN [Suspect]
     Active Substance: CYCLOSPORINE
     Indication: PEMPHIGOID
     Dosage: UNK
     Route: 065
  2. PREDNISONE. [Suspect]
     Active Substance: PREDNISONE
     Indication: PEMPHIGOID
     Dosage: UNK
     Route: 065

REACTIONS (8)
  - Respiratory distress [Unknown]
  - Eye abscess [Unknown]
  - Headache [Unknown]
  - Central nervous system lesion [Unknown]
  - Eye infection bacterial [Unknown]
  - Mental impairment [Unknown]
  - Nocardiosis [Unknown]
  - Eye disorder [Unknown]
